FAERS Safety Report 6346277-7 (Version None)
Quarter: 2009Q3

REPORT INFORMATION
  Report Type: 
  Country: None (occurrence: None)
  Receive Date: 20090909
  Receipt Date: 20090828
  Transmission Date: 20100115
  Serious: Yes (Hospitalization, Other)
  Sender: FDA-Public Use
  Company Number: PHEH2009US08581

PATIENT
  Sex: Female
  Weight: 68.027 kg

DRUGS (21)
  1. RECLAST [Suspect]
     Dosage: UNK
     Dates: start: 20080609, end: 20090609
  2. RECLAST [Suspect]
     Dosage: UNK, ONCE/SINGLE
     Dates: start: 20090730, end: 20090730
  3. TEGRETOL [Concomitant]
     Dosage: 100 MG IN AM, 200 MG IN PM
  4. SEROQUEL [Concomitant]
     Dosage: 50 MG IN AM, 150 MG IN PM, 50 MG PRN
  5. LEVOTHYROXINE [Concomitant]
     Dosage: 75 UG, QD
  6. TAXOL [Concomitant]
     Dosage: UNK, UNK
  7. PAXIL [Concomitant]
  8. CYCLOBENZAPRINE [Concomitant]
  9. ASCORBIC ACID [Concomitant]
  10. BUSPIRONE HCL [Concomitant]
     Dosage: 15 MG, BID
  11. WELLBUTRIN [Concomitant]
     Dosage: UNK, UNK
  12. VITAMIN D [Concomitant]
     Dosage: UNK, UNK
  13. CALCIUM [Concomitant]
     Dosage: UNK, UNK
  14. FISH OIL [Concomitant]
     Dosage: UNK, UNK
  15. BENEFIBER [Concomitant]
     Dosage: UNK, AS DIRECTED
  16. BUPROPION HCL [Concomitant]
     Dosage: 200 MG, QD
  17. COLACE [Concomitant]
     Dosage: 100 MG, PRN
  18. LORAZEPAM [Concomitant]
     Dosage: 0.5 MG, TID
  19. MELATONIN [Concomitant]
     Dosage: 3 MG, TWO TO THREE TIMES QHS
  20. LOVAZA [Concomitant]
     Dosage: 1 G, QID
  21. IBUPROFEN [Concomitant]
     Dosage: 1600 MG, QD

REACTIONS (7)
  - BONE DISORDER [None]
  - DEPRESSION [None]
  - OSTECTOMY [None]
  - SEQUESTRECTOMY [None]
  - TOOTH DISORDER [None]
  - TOOTH EXTRACTION [None]
  - TOOTHACHE [None]
